FAERS Safety Report 17291506 (Version 1)
Quarter: 2020Q1

REPORT INFORMATION
  Report Type: Report from Study
  Country: NO (occurrence: NO)
  Receive Date: 20200121
  Receipt Date: 20200121
  Transmission Date: 20200409
  Serious: Yes (Other)
  Sender: FDA-Public Use
  Company Number: NO-BAYER-2019-162645

PATIENT
  Age: 43 Year
  Sex: Female
  Weight: 80 kg

DRUGS (2)
  1. MIRENA [Suspect]
     Active Substance: LEVONORGESTREL
     Dosage: 20 MCG/24HR, CONT
     Route: 015
     Dates: start: 20190902, end: 20190902
  2. MIRENA [Suspect]
     Active Substance: LEVONORGESTREL

REACTIONS (5)
  - Procedural pain [Recovered/Resolved]
  - Embedded device [Recovered/Resolved]
  - Device difficult to use [None]
  - Complication of device insertion [None]
  - Abdominal pain [Recovered/Resolved]

NARRATIVE: CASE EVENT DATE: 20190902
